FAERS Safety Report 10081877 (Version 2)
Quarter: 2014Q2

REPORT INFORMATION
  Report Type: Report from Study
  Country: VE (occurrence: VE)
  Receive Date: 20140416
  Receipt Date: 20140429
  Transmission Date: 20141212
  Serious: Yes (Life-Threatening, Hospitalization)
  Sender: FDA-Public Use
  Company Number: VE-ABBVIE-14P-178-1225281-00

PATIENT
  Age: 49 Year
  Sex: Male

DRUGS (2)
  1. HUMIRA [Suspect]
     Indication: PSORIASIS
     Route: 058
     Dates: start: 20131001, end: 201401
  2. CLOBETASOL [Concomitant]
     Indication: PSORIASIS
     Route: 061
     Dates: start: 201402

REACTIONS (1)
  - Road traffic accident [Recovered/Resolved]
